FAERS Safety Report 24167331 (Version 7)
Quarter: 2025Q3

REPORT INFORMATION
  Report Type: Spontaneous
  Country: US (occurrence: US)
  Receive Date: 20240802
  Receipt Date: 20250820
  Transmission Date: 20251020
  Serious: No
  Sender: BRISTOL-MYERS SQUIBB COMPANY
  Company Number: US-BRISTOL-MYERS SQUIBB COMPANY-2024-122064

PATIENT
  Age: 58 Year
  Sex: Female

DRUGS (3)
  1. REVLIMID [Suspect]
     Active Substance: LENALIDOMIDE
     Indication: Plasma cell myeloma
     Route: 048
  2. REVLIMID [Suspect]
     Active Substance: LENALIDOMIDE
     Indication: Plasma cell myeloma in remission
     Route: 048
  3. REVLIMID [Suspect]
     Active Substance: LENALIDOMIDE
     Dosage: STRENGTH - 5MG
     Route: 048

REACTIONS (13)
  - Asthenia [Unknown]
  - Pain [Unknown]
  - Nausea [Unknown]
  - Dry skin [Unknown]
  - Skin discolouration [Unknown]
  - Rhinorrhoea [Unknown]
  - Insurance issue [Unknown]
  - Therapy interrupted [Unknown]
  - Rash [Unknown]
  - Skin irritation [Unknown]
  - Skin disorder [Unknown]
  - Pain of skin [Unknown]
  - Rash pruritic [Unknown]
